FAERS Safety Report 12287976 (Version 3)
Quarter: 2017Q1

REPORT INFORMATION
  Report Type: Spontaneous
  Country: JP (occurrence: JP)
  Receive Date: 20160420
  Receipt Date: 20170329
  Transmission Date: 20170428
  Serious: Yes (Life-Threatening, Hospitalization, Other)
  Sender: FDA-Public Use
  Company Number: JP-ASTRAZENECA-2016SE25854

PATIENT
  Age: 26343 Day
  Sex: Male
  Weight: 49 kg

DRUGS (6)
  1. SHAKUYAKUKANZOTO [Concomitant]
     Active Substance: HERBALS
     Indication: NEUROPATHY PERIPHERAL
     Route: 048
     Dates: start: 20100420
  2. IRESSA [Suspect]
     Active Substance: GEFITINIB
     Indication: NON-SMALL CELL LUNG CANCER RECURRENT
     Route: 048
     Dates: start: 20131005, end: 20160204
  3. HALFDIGOXIN [Concomitant]
     Active Substance: DIGOXIN
     Indication: ATRIAL FIBRILLATION
     Route: 048
     Dates: start: 20140612
  4. XARELTO [Concomitant]
     Active Substance: RIVAROXABAN
     Indication: ATRIAL FIBRILLATION
     Route: 048
     Dates: start: 20140612
  5. LIPITOR [Concomitant]
     Active Substance: ATORVASTATIN CALCIUM
     Indication: HYPERLIPIDAEMIA
     Route: 048
     Dates: start: 20110113
  6. METHYCOBAL [Concomitant]
     Active Substance: METHYLCOBALAMIN
     Indication: NEUROPATHY PERIPHERAL
     Route: 048
     Dates: start: 20100420

REACTIONS (2)
  - Interstitial lung disease [Recovered/Resolved]
  - Pneumothorax [Unknown]

NARRATIVE: CASE EVENT DATE: 20160204
